FAERS Safety Report 23604175 (Version 1)
Quarter: 2024Q1

REPORT INFORMATION
  Report Type: Report from Study
  Country: JP (occurrence: JP)
  Receive Date: 20240307
  Receipt Date: 20240307
  Transmission Date: 20240410
  Serious: Yes (Other)
  Sender: FDA-Public Use
  Company Number: JP-Vifor (International) Inc.-VIT-2024-01988

PATIENT
  Age: 67 Year
  Sex: Male
  Weight: 67.2 kg

DRUGS (7)
  1. AVACOPAN [Suspect]
     Active Substance: AVACOPAN
     Indication: Granulomatosis with polyangiitis
     Dosage: 30 MILLIGRAM, Q12H
     Route: 048
     Dates: start: 20230825
  2. PREDNISOLONE [Suspect]
     Active Substance: PREDNISOLONE
     Indication: Granulomatosis with polyangiitis
     Dosage: UNK
     Route: 048
  3. AZATHIOPRINE [Suspect]
     Active Substance: AZATHIOPRINE
     Indication: Granulomatosis with polyangiitis
     Dosage: UNK
     Route: 048
  4. SULFAMETHOXAZOLE\TRIMETHOPRIM [Concomitant]
     Active Substance: SULFAMETHOXAZOLE\TRIMETHOPRIM
     Indication: Antifungal prophylaxis
     Dosage: UNK
     Route: 048
  5. METHYLCOBALAMIN [Concomitant]
     Active Substance: METHYLCOBALAMIN
     Dosage: UNK
     Route: 048
  6. IRSOGLADINE MALEATE [Concomitant]
     Active Substance: IRSOGLADINE MALEATE
     Dosage: UNK
     Route: 048
  7. ALENDRONATE [Concomitant]
     Active Substance: ALENDRONATE SODIUM
     Dosage: UNK
     Route: 048

REACTIONS (1)
  - Pneumonia bacterial [Recovered/Resolved]

NARRATIVE: CASE EVENT DATE: 20231020
